FAERS Safety Report 11111904 (Version 2)
Quarter: 2015Q3

REPORT INFORMATION
  Report Type: Spontaneous
  Country: US (occurrence: None)
  Receive Date: 20150512
  Receipt Date: 20150817
  Transmission Date: 20151125
  Serious: Yes (Death, Hospitalization)
  Sender: FDA-Public Use
  Company Number: 1224850-2015-00020

PATIENT
  Age: 63 Year
  Sex: Male

DRUGS (3)
  1. LIBERTY CYCLER SET [Concomitant]
     Active Substance: DEVICE
  2. LIBERTY CYCLER [Concomitant]
     Active Substance: DEVICE
  3. CALCIUM ACETATE. [Suspect]
     Active Substance: CALCIUM ACETATE
     Indication: HYPERPHOSPHATAEMIA
     Dosage: CAPSULE

REACTIONS (13)
  - Hiccups [None]
  - Ammonia increased [None]
  - Encephalopathy [None]
  - Mental status changes [None]
  - Asthenia [None]
  - Confusional state [None]
  - Cardio-respiratory arrest [None]
  - Vomiting [None]
  - Condition aggravated [None]
  - Hypophagia [None]
  - Hypotension [None]
  - Haemodialysis [None]
  - Hepatic lesion [None]

NARRATIVE: CASE EVENT DATE: 20150225
